FAERS Safety Report 20259355 (Version 1)
Quarter: 2021Q4

REPORT INFORMATION
  Report Type: Spontaneous
  Country: US (occurrence: None)
  Receive Date: 20211230
  Receipt Date: 20211230
  Transmission Date: 20220303
  Serious: Yes (Other)
  Sender: FDA-Public Use
  Company Number: None

PATIENT
  Age: 23 Year
  Sex: Female

DRUGS (1)
  1. NEXPLANON [Suspect]
     Active Substance: ETONOGESTREL

REACTIONS (6)
  - Hypophagia [None]
  - Vomiting [None]
  - Pain in extremity [None]
  - Abdominal pain upper [None]
  - Haemorrhage [None]
  - Mood altered [None]

NARRATIVE: CASE EVENT DATE: 20210830
